FAERS Safety Report 7310560-9 (Version None)
Quarter: 2011Q1

REPORT INFORMATION
  Report Type: 
  Country: None (occurrence: None)
  Receive Date: 20110224
  Receipt Date: 20100106
  Transmission Date: 20110831
  Serious: No
  Sender: FDA-Public Use
  Company Number: US-BRISTOL-MYERS SQUIBB COMPANY-14923684

PATIENT

DRUGS (6)
  1. PENICILLIN [Suspect]
  2. METFORMIN HCL [Suspect]
  3. GLUCOPHAGE [Suspect]
  4. CODEINE SULFATE [Suspect]
  5. ERYTHROMYCIN [Suspect]
  6. SULFA [Suspect]

REACTIONS (1)
  - HYPERSENSITIVITY [None]
